FAERS Safety Report 6734702-9 (Version None)
Quarter: 2010Q2

REPORT INFORMATION
  Report Type: 
  Country: None (occurrence: None)
  Receive Date: 20100519
  Receipt Date: 20100519
  Transmission Date: 20101027
  Serious: No
  Sender: FDA-Public Use
  Company Number: None

PATIENT
  Sex: Female
  Weight: 49.8957 kg

DRUGS (3)
  1. VANCOMYCIN [Suspect]
     Indication: OSTEOMYELITIS
     Dosage: 1000 MG EVERY 8 HOURS IV
     Route: 042
     Dates: start: 19990815, end: 19990930
  2. VANCOMYCIN [Suspect]
     Indication: POSTOPERATIVE WOUND INFECTION
     Dosage: 1000 MG EVERY 8 HOURS IV
     Route: 042
     Dates: start: 19990815, end: 19990930
  3. VANCOMYCIN [Suspect]
     Indication: STAPHYLOCOCCAL INFECTION
     Dosage: 1000 MG EVERY 8 HOURS IV
     Route: 042
     Dates: start: 19990815, end: 19990930

REACTIONS (1)
  - DEAFNESS [None]
